FAERS Safety Report 5123098-4 (Version None)
Quarter: 2006Q4

REPORT INFORMATION
  Report Type: 
  Country: None (occurrence: None)
  Receive Date: 20061009
  Receipt Date: 20060927
  Transmission Date: 20070319
  Serious: Yes (Death)
  Sender: FDA-Public Use
  Company Number: PHBS2006JP15030

PATIENT
  Age: 42 Year
  Sex: Male

DRUGS (5)
  1. CYCLOSPORINE [Suspect]
     Indication: BONE MARROW TRANSPLANT
     Route: 065
  2. TACROLIMUS [Suspect]
     Indication: BONE MARROW TRANSPLANT
     Route: 065
  3. METHOTREXATE [Concomitant]
     Indication: BONE MARROW TRANSPLANT
  4. MYCOPHENOLATE MOFETIL [Concomitant]
     Indication: BONE MARROW TRANSPLANT
  5. METHYLPREDNISOLONE [Concomitant]
     Indication: BONE MARROW TRANSPLANT

REACTIONS (1)
  - TRICHOSPORON INFECTION [None]
